FAERS Safety Report 5858958-X (Version None)
Quarter: 2008Q3

REPORT INFORMATION
  Report Type: 
  Country: None (occurrence: None)
  Receive Date: 20080825
  Receipt Date: 20060821
  Transmission Date: 20090109
  Serious: Yes (Death)
  Sender: FDA-Public Use
  Company Number: PAR_0826_2006

PATIENT
  Sex: Male

DRUGS (3)
  1. CAPTOPRIL [Suspect]
     Indication: BLOOD PRESSURE
     Dosage: ORAL
     Route: 048
  2. ALEVE [Suspect]
     Dosage: ORAL
     Route: 048
     Dates: start: 20040101
  3. STOMATOLOGICALS, MOUTH PREPARATIONS [Suspect]
     Dosage: ORAL
     Route: 048

REACTIONS (3)
  - PHARYNGEAL OEDEMA [None]
  - RESPIRATORY ARREST [None]
  - SWOLLEN TONGUE [None]
